FAERS Safety Report 5279300-1 (Version None)
Quarter: 2007Q1

REPORT INFORMATION
  Report Type: 
  Country: None (occurrence: None)
  Receive Date: 20070328
  Receipt Date: 20060519
  Transmission Date: 20070707
  Serious: No
  Sender: FDA-Public Use
  Company Number: US-AMGEN-KDL180210

PATIENT
  Sex: Female

DRUGS (5)
  1. NEULASTA [Suspect]
     Indication: CHEMOTHERAPY
  2. PROCRIT [Concomitant]
  3. OMEGA 3 [Concomitant]
  4. CARBOPLATIN [Concomitant]
  5. TAXOL [Concomitant]

REACTIONS (1)
  - INJECTION SITE REACTION [None]
